FAERS Safety Report 6477589-4 (Version None)
Quarter: 2009Q4

REPORT INFORMATION
  Report Type: 
  Country: None (occurrence: None)
  Receive Date: 20091207
  Receipt Date: 20091130
  Transmission Date: 20100525
  Serious: Yes (Hospitalization)
  Sender: FDA-Public Use
  Company Number: DE-WYE-G05020609

PATIENT
  Sex: Female
  Weight: 84 kg

DRUGS (12)
  1. TORISEL [Suspect]
     Indication: METASTATIC RENAL CELL CARCINOMA
     Route: 042
     Dates: start: 20080616, end: 20080901
  2. L-THYROXIN [Concomitant]
  3. CANDESARTAN CILEXETIL [Concomitant]
  4. METHYLPREDNISOLONE [Concomitant]
     Indication: PREMEDICATION
     Route: 042
     Dates: start: 20080623, end: 20080623
  5. HYDROCHLOROTHIAZIDE [Concomitant]
  6. SIMVASTATIN [Concomitant]
  7. CLEMASTINE FUMARATE [Concomitant]
     Indication: PREMEDICATION
     Route: 042
     Dates: start: 20080616, end: 20080616
  8. CLEMASTINE FUMARATE [Concomitant]
     Route: 042
     Dates: start: 20080623, end: 20080623
  9. RANITIDINE [Concomitant]
     Indication: PREMEDICATION
     Route: 042
     Dates: start: 20080616, end: 20080616
  10. RANITIDINE [Concomitant]
     Route: 042
     Dates: start: 20080623, end: 20080623
  11. METOPROLOL [Concomitant]
  12. AMILORIDE HYDROCHLORIDE [Concomitant]

REACTIONS (3)
  - BLADDER TAMPONADE [None]
  - CARDIOGENIC SHOCK [None]
  - HAEMATURIA [None]
